FAERS Safety Report 11460013 (Version 3)
Quarter: 2015Q4

REPORT INFORMATION
  Report Type: Spontaneous
  Country: JP (occurrence: JP)
  Receive Date: 20150904
  Receipt Date: 20151211
  Transmission Date: 20160304
  Serious: Yes (Hospitalization, Other)
  Sender: FDA-Public Use
  Company Number: JP-PFIZER INC-2015294105

PATIENT
  Age: 4 Decade
  Sex: Female

DRUGS (1)
  1. CELECOX [Suspect]
     Active Substance: CELECOXIB
     Indication: ARTHRALGIA
     Dosage: UNK
     Route: 048

REACTIONS (6)
  - Pyrexia [Unknown]
  - Lymphadenopathy [Unknown]
  - Erythema [Unknown]
  - Rash pustular [Unknown]
  - Systemic lupus erythematosus [Unknown]
  - Drug reaction with eosinophilia and systemic symptoms [Recovering/Resolving]
